FAERS Safety Report 10181214 (Version 2)
Quarter: 2014Q2

REPORT INFORMATION
  Report Type: Spontaneous
  Country: US (occurrence: US)
  Receive Date: 20140519
  Receipt Date: 20140519
  Transmission Date: 20141212
  Serious: No
  Sender: FDA-Public Use
  Company Number: US-AMGEN INC.-USASP2014026871

PATIENT
  Age: 82 Year
  Sex: Female
  Weight: 52.61 kg

DRUGS (6)
  1. PROLIA [Suspect]
     Indication: OSTEOPOROSIS POSTMENOPAUSAL
     Dosage: 60 MG, ONCE
     Route: 058
     Dates: start: 20131209
  2. SPIRIVA [Concomitant]
  3. PRAVASTATIN [Concomitant]
     Dosage: 20 MG, QD
  4. XANAX [Concomitant]
     Dosage: 0.25 MG, AS NECESSARY
  5. PRILOSEC                           /00661201/ [Concomitant]
  6. ASA [Concomitant]

REACTIONS (8)
  - Muscle spasms [Recovering/Resolving]
  - Eructation [Unknown]
  - Hiccups [Unknown]
  - Nausea [Unknown]
  - Abdominal discomfort [Recovered/Resolved]
  - Abdominal distension [Unknown]
  - Back pain [Unknown]
  - Flatulence [Unknown]
